FAERS Safety Report 9852753 (Version 3)
Quarter: 2014Q3

REPORT INFORMATION
  Report Type: Spontaneous
  Country: US (occurrence: US)
  Receive Date: 20140129
  Receipt Date: 20140923
  Transmission Date: 20150326
  Serious: Yes (Hospitalization, Other)
  Sender: FDA-Public Use
  Company Number: US-009507513-1401USA012941

PATIENT
  Sex: Female

DRUGS (1)
  1. NUVARING [Suspect]
     Active Substance: ETHINYL ESTRADIOL\ETONOGESTREL
     Indication: CONTRACEPTION
     Route: 067

REACTIONS (7)
  - Urinary tract infection [Unknown]
  - Costovertebral angle tenderness [Recovering/Resolving]
  - Pulmonary embolism [Unknown]
  - Pyelonephritis [Recovering/Resolving]
  - Abortion induced [Unknown]
  - Maternal exposure before pregnancy [Unknown]
  - Musculoskeletal chest pain [Recovering/Resolving]

NARRATIVE: CASE EVENT DATE: 200904
